FAERS Safety Report 10151922 (Version 1)
Quarter: 2014Q2

REPORT INFORMATION
  Report Type: Spontaneous
  Country: GB (occurrence: GB)
  Receive Date: 20140505
  Receipt Date: 20140505
  Transmission Date: 20141212
  Serious: Yes (Other)
  Sender: FDA-Public Use
  Company Number: GB-JNJFOC-20140417233

PATIENT
  Sex: Male

DRUGS (1)
  1. SPORANOX [Suspect]
     Indication: TINEA PEDIS
     Route: 048

REACTIONS (10)
  - Bedridden [Unknown]
  - Vertigo [Unknown]
  - Confusional state [Unknown]
  - Asthenia [Unknown]
  - Hypoaesthesia [Unknown]
  - Headache [Unknown]
  - Malaise [Unknown]
  - Body temperature [Unknown]
  - Fatigue [Unknown]
  - Drug dose omission [Unknown]
